FAERS Safety Report 19476647 (Version 1)
Quarter: 2021Q2

REPORT INFORMATION
  Report Type: Spontaneous
  Country: GB (occurrence: GB)
  Receive Date: 20210630
  Receipt Date: 20210630
  Transmission Date: 20210717
  Serious: Yes (Other)
  Sender: FDA-Public Use
  Company Number: GB-ACCORD-229594

PATIENT
  Age: 62 Year
  Sex: Male
  Weight: 87 kg

DRUGS (4)
  1. RAMIPRIL. [Concomitant]
     Active Substance: RAMIPRIL
     Indication: ILL-DEFINED DISORDER
  2. MORPHINE [Concomitant]
     Active Substance: MORPHINE
     Indication: ILL-DEFINED DISORDER
  3. NAPROXEN. [Concomitant]
     Active Substance: NAPROXEN
     Indication: ILL-DEFINED DISORDER
  4. SERTRALINE [Suspect]
     Active Substance: SERTRALINE HYDROCHLORIDE
     Indication: ANXIETY
     Dosage: 50 MG
     Route: 048
     Dates: start: 20210504

REACTIONS (2)
  - Myalgia [Not Recovered/Not Resolved]
  - Palpitations [Not Recovered/Not Resolved]

NARRATIVE: CASE EVENT DATE: 20210520
